FAERS Safety Report 11914211 (Version 6)
Quarter: 2018Q2

REPORT INFORMATION
  Report Type: Spontaneous
  Country: US (occurrence: US)
  Receive Date: 20160113
  Receipt Date: 20180525
  Transmission Date: 20180711
  Serious: Yes (Hospitalization, Other)
  Sender: FDA-Public Use
  Company Number: US-BAYER-2016-006253

PATIENT
  Age: 31 Year
  Sex: Female
  Weight: 95.24 kg

DRUGS (3)
  1. LOESTRIN NOS [Concomitant]
     Active Substance: ETHINYL ESTRADIOL\NORETHINDRONE ACETATE
  2. MIRENA [Suspect]
     Active Substance: LEVONORGESTREL
     Indication: MENSTRUAL CYCLE MANAGEMENT
     Dosage: 20 MCG/24HR, CONT
     Route: 015
     Dates: start: 20151228
  3. MOTRIN [Concomitant]
     Active Substance: IBUPROFEN

REACTIONS (18)
  - Vaginal haemorrhage [Unknown]
  - Headache [Unknown]
  - Dyspareunia [Unknown]
  - Alopecia [Unknown]
  - Back pain [Recovered/Resolved]
  - Genital haemorrhage [Recovered/Resolved]
  - Menstrual disorder [Unknown]
  - Off label use of device [Unknown]
  - Dysmenorrhoea [Unknown]
  - Weight increased [Unknown]
  - Abdominal pain [Recovered/Resolved]
  - Depression [Unknown]
  - Migraine [Unknown]
  - Pelvic pain [Unknown]
  - Pulmonary thrombosis [Recovered/Resolved]
  - Infection [Unknown]
  - Menorrhagia [Unknown]
  - Fatigue [Unknown]

NARRATIVE: CASE EVENT DATE: 20151228
